FAERS Safety Report 12009779 (Version 1)
Quarter: 2016Q1

REPORT INFORMATION
  Report Type: Spontaneous
  Country: DE (occurrence: None)
  Receive Date: 20160204
  Receipt Date: 20160204
  Transmission Date: 20160526
  Serious: Yes (Hospitalization)
  Sender: FDA-Public Use
  Company Number: None

PATIENT
  Sex: Male

DRUGS (8)
  1. TORASEMID [Concomitant]
     Active Substance: TORSEMIDE
  2. DACLATASVIR 0-60-0-0 (MG) [Suspect]
     Active Substance: DACLATASVIR
     Indication: HEPATITIS C
     Route: 048
     Dates: start: 20150720, end: 20160104
  3. SOFOSBUVIR [Suspect]
     Active Substance: SOFOSBUVIR
  4. SPIRONOLACTON [Concomitant]
     Active Substance: SPIRONOLACTONE
  5. AMOXICILLIN. [Concomitant]
     Active Substance: AMOXICILLIN
  6. PROPOFOL. [Concomitant]
     Active Substance: PROPOFOL
  7. RIBAVIRIN 200-0-400 (MG) [Suspect]
     Active Substance: RIBAVIRIN
     Indication: HEPATITIS C
     Dosage: 200-0-400 MG, 1X, P.O.
     Dates: start: 20150720, end: 20160104
  8. METRONIDAZOL [Concomitant]
     Active Substance: METRONIDAZOLE

REACTIONS (3)
  - Diarrhoea [None]
  - Musculoskeletal stiffness [None]
  - Pyrexia [None]

NARRATIVE: CASE EVENT DATE: 20151013
